APPROVED DRUG PRODUCT: BUPIVACAINE HYDROCHLORIDE
Active Ingredient: BUPIVACAINE HYDROCHLORIDE
Strength: 0.5%
Dosage Form/Route: INJECTABLE;INJECTION
Application: N018053 | Product #001
Applicant: HOSPIRA INC
Approved: Approved Prior to Jan 1, 1982 | RLD: No | RS: No | Type: DISCN